FAERS Safety Report 8777473 (Version 2)
Quarter: 2012Q4

REPORT INFORMATION
  Report Type: 
  Country: GB (occurrence: GB)
  Receive Date: 20120911
  Receipt Date: 20120927
  Transmission Date: 20130627
  Serious: Yes (Other)
  Sender: FDA-Public Use
  Company Number: GB-SANOFI-AVENTIS-2012SA064588

PATIENT
  Age: 56 Year
  Sex: Female

DRUGS (4)
  1. PLAQUENIL [Suspect]
     Indication: POLYARTHRALGIA
     Dosage: with evening meal
     Route: 048
     Dates: start: 201111
  2. GAVISCON ADVANCE [Interacting]
     Indication: GASTROOESOPHAGEAL REFLUX
     Route: 065
  3. VITAMIN B NOS/MAGNESIUM GLYCEROPHOSPHATE/RETINOL/FERROUS CARBONATE SACCHAROSE COMPLEX/TOCOPHEROL/CAL [Concomitant]
     Dosage: in the morning
     Dates: start: 201208
  4. GARLIC [Concomitant]
     Dosage: frequency: occasionally

REACTIONS (8)
  - Dyspnoea at rest [Recovered/Resolved]
  - Drug interaction [Unknown]
  - Chest discomfort [Recovered/Resolved]
  - Feeling abnormal [Recovered/Resolved]
  - Chest pain [Recovered/Resolved]
  - Nervousness [Recovered/Resolved]
  - Malaise [Recovered/Resolved]
  - Diarrhoea [Recovered/Resolved]
